FAERS Safety Report 6495487-7 (Version None)
Quarter: 2009Q4

REPORT INFORMATION
  Report Type: 
  Country: None (occurrence: None)
  Receive Date: 20091214
  Receipt Date: 20090630
  Transmission Date: 20100525
  Serious: No
  Sender: FDA-Public Use
  Company Number: US-BRISTOL-MYERS SQUIBB COMPANY-14685093

PATIENT
  Age: 52 Year
  Sex: Male

DRUGS (3)
  1. ABILIFY [Suspect]
     Indication: BIPOLAR DISORDER
  2. INDOCIN [Concomitant]
  3. LAMOTRIGINE [Concomitant]
     Dosage: LAMOTRIGINE 'C3 HIV'

REACTIONS (1)
  - ARTHRALGIA [None]
